FAERS Safety Report 5780110-7 (Version None)
Quarter: 2008Q2

REPORT INFORMATION
  Report Type: 
  Country: None (occurrence: None)
  Receive Date: 20080620
  Receipt Date: 20080613
  Transmission Date: 20081010
  Serious: Yes (Life-Threatening, Other)
  Sender: FDA-Public Use
  Company Number: GB-TEVA-172925ISR

PATIENT
  Age: 64 Year
  Sex: Female

DRUGS (1)
  1. PHENYTOIN [Suspect]
     Dates: start: 20080314, end: 20080314

REACTIONS (2)
  - HEART RATE INCREASED [None]
  - RESPIRATORY RATE INCREASED [None]
